FAERS Safety Report 17311385 (Version 2)
Quarter: 2020Q1

REPORT INFORMATION
  Report Type: Spontaneous
  Country: US (occurrence: US)
  Receive Date: 20200123
  Receipt Date: 20200204
  Transmission Date: 20200409
  Serious: No
  Sender: FDA-Public Use
  Company Number: US-BAUSCH-BL-2020-001277

PATIENT
  Sex: Female
  Weight: 78.54 kg

DRUGS (1)
  1. LUMIFY [Suspect]
     Active Substance: BRIMONIDINE TARTRATE
     Indication: OCULAR HYPERAEMIA
     Dosage: STARTED APPROXIMATELY THREE TO FOUR MONTHS AGO, AS NEEDED (DROP IN EACH EYE EVERY 15 TO 30 MINUTES)
     Route: 047
     Dates: start: 2019

REACTIONS (4)
  - Therapeutic product effect incomplete [Unknown]
  - Extra dose administered [Unknown]
  - Product packaging quantity issue [Unknown]
  - Product quality issue [Unknown]
